FAERS Safety Report 7206415-0 (Version None)
Quarter: 2011Q1

REPORT INFORMATION
  Report Type: 
  Country: None (occurrence: None)
  Receive Date: 20110103
  Receipt Date: 20110103
  Transmission Date: 20110831
  Serious: Yes (Hospitalization, Other)
  Sender: FDA-Public Use
  Company Number: PHHO2007DE13379

PATIENT
  Sex: Male
  Weight: 63 kg

DRUGS (4)
  1. CERTICAN [Suspect]
     Indication: CONGENITAL CYSTIC KIDNEY DISEASE
     Dosage: UNK
     Route: 048
     Dates: start: 20070511, end: 20070813
  2. DECORTIN [Concomitant]
  3. RIFAMPICIN [Concomitant]
  4. CERTICAN [Suspect]
     Dosage: DOUBLE BLIND
     Route: 048
     Dates: start: 20070814, end: 20070910

REACTIONS (17)
  - GRANULOMA [None]
  - CONCOMITANT DISEASE PROGRESSION [None]
  - URINARY TRACT INFECTION [None]
  - LYMPHADENOPATHY [None]
  - IRON DEFICIENCY [None]
  - LYMPH NODE TUBERCULOSIS [None]
  - LYMPHOMA [None]
  - LOCAL SWELLING [None]
  - PROCEDURAL COMPLICATION [None]
  - MYCOBACTERIUM TUBERCULOSIS COMPLEX TEST POSITIVE [None]
  - NECROSIS [None]
  - LYMPHADENECTOMY [None]
  - LYMPHADENITIS [None]
  - NECK PAIN [None]
  - MONOPARESIS [None]
  - THYROID NEOPLASM [None]
  - ULCER [None]
